FAERS Safety Report 6258659-2 (Version None)
Quarter: 2009Q3

REPORT INFORMATION
  Report Type: 
  Country: None (occurrence: None)
  Receive Date: 20090707
  Receipt Date: 20090701
  Transmission Date: 20100115
  Serious: No
  Sender: FDA-Public Use
  Company Number: US-B.I. PHARMACEUTICALS,INC./RIDGEFIELD-2009-BP-07930BP

PATIENT
  Sex: Female

DRUGS (6)
  1. ZANTAC 150 [Suspect]
     Indication: DYSPEPSIA
     Dosage: 300 MG
     Route: 048
     Dates: start: 20090601
  2. PLAVIX [Concomitant]
     Indication: HYPERTENSION
  3. HYDROXYUREA [Concomitant]
     Indication: POLYCYTHAEMIA VERA
  4. SYNTHROID [Concomitant]
     Indication: HYPOTHYROIDISM
  5. PREMARIN [Concomitant]
     Indication: HOT FLUSH
  6. NIFEDIPINE [Concomitant]
     Indication: HYPERTENSION

REACTIONS (1)
  - CONSTIPATION [None]
